FAERS Safety Report 13441283 (Version 1)
Quarter: 2017Q2

REPORT INFORMATION
  Report Type: Spontaneous
  Country: US (occurrence: US)
  Receive Date: 20170413
  Receipt Date: 20170413
  Transmission Date: 20170830
  Serious: No
  Sender: FDA-Public Use
  Company Number: US-AMGEN-USASP2017052399

PATIENT
  Sex: Male

DRUGS (18)
  1. AMLODIPINE BESYLATE. [Concomitant]
     Active Substance: AMLODIPINE BESYLATE
     Dosage: UNK
  2. CELECOXIB. [Concomitant]
     Active Substance: CELECOXIB
     Dosage: UNK
  3. VYTORIN [Concomitant]
     Active Substance: EZETIMIBE\SIMVASTATIN
     Dosage: UNK
  4. ENBREL [Suspect]
     Active Substance: ETANERCEPT
     Indication: RHEUMATOID ARTHRITIS
     Dosage: 50 MG, QWK
     Route: 058
  5. SUBOXONE [Concomitant]
     Active Substance: BUPRENORPHINE HYDROCHLORIDE\NALOXONE HYDROCHLORIDE
     Dosage: UNK
  6. ANDROGEL [Concomitant]
     Active Substance: TESTOSTERONE
     Dosage: UNK
  7. DEXTROAMPHETAMINE SULFATE. [Concomitant]
     Active Substance: DEXTROAMPHETAMINE SULFATE
     Dosage: UNK
  8. VALSARTAN. [Concomitant]
     Active Substance: VALSARTAN
     Dosage: UNK
  9. PROAIR HFA [Concomitant]
     Active Substance: ALBUTEROL SULFATE
     Dosage: UNK
  10. ASPIRIN. [Concomitant]
     Active Substance: ASPIRIN
     Dosage: 325 MG, UNK
  11. MODAFINIL. [Concomitant]
     Active Substance: MODAFINIL
     Dosage: UNK
  12. PREDNISONE. [Concomitant]
     Active Substance: PREDNISONE
     Dosage: UNK
  13. SOTALOL HCL [Concomitant]
     Active Substance: SOTALOL
     Dosage: UNK
  14. DULOXETINE. [Concomitant]
     Active Substance: DULOXETINE
     Dosage: UNK
  15. BUSPIRONE HCL [Concomitant]
     Active Substance: BUSPIRONE HYDROCHLORIDE
     Dosage: UNK
  16. VITAMIN B12 [Concomitant]
     Active Substance: CYANOCOBALAMIN
     Dosage: UNK
  17. LIDOCAINE/PRILOCAINE [Concomitant]
     Active Substance: LIDOCAINE\PRILOCAINE
     Dosage: UNK
  18. XARELTO [Concomitant]
     Active Substance: RIVAROXABAN
     Dosage: UNK

REACTIONS (3)
  - Drug ineffective [Unknown]
  - Abdominal distension [Unknown]
  - Lymphadenopathy [Unknown]
